FAERS Safety Report 22018074 (Version 1)
Quarter: 2023Q1

REPORT INFORMATION
  Report Type: Spontaneous
  Country: US (occurrence: US)
  Receive Date: 20230221
  Receipt Date: 20230221
  Transmission Date: 20230418
  Serious: No
  Sender: FDA-Public Use
  Company Number: US-PFIZER INC-PV202300033470

PATIENT

DRUGS (1)
  1. PAXLOVID [Suspect]
     Active Substance: NIRMATRELVIR\RITONAVIR
     Indication: COVID-19 treatment
     Dosage: UNK

REACTIONS (7)
  - Pulmonary pain [Unknown]
  - Renal pain [Unknown]
  - Fall [Unknown]
  - Feeling abnormal [Unknown]
  - Alopecia [Unknown]
  - Vomiting [Unknown]
  - Headache [Unknown]
